APPROVED DRUG PRODUCT: KEVEYIS
Active Ingredient: DICHLORPHENAMIDE
Strength: 50MG
Dosage Form/Route: TABLET;ORAL
Application: N011366 | Product #002 | TE Code: AB
Applicant: XERIS PHARMACEUTICALS INC
Approved: Aug 7, 2015 | RLD: Yes | RS: Yes | Type: RX